FAERS Safety Report 5654366-5 (Version None)
Quarter: 2008Q1

REPORT INFORMATION
  Report Type: 
  Country: None (occurrence: None)
  Receive Date: 20080305
  Receipt Date: 20080220
  Transmission Date: 20080703
  Serious: Yes (Other)
  Sender: FDA-Public Use
  Company Number: 230163J08USA

PATIENT
  Age: 68 Year
  Sex: Female
  Weight: 88.4514 kg

DRUGS (15)
  1. REBIF [Suspect]
     Indication: MULTIPLE SCLEROSIS
     Dosage: 44 MCG, 3 IN 1 WEEKS, SUBCUTANEOUS
     Route: 058
     Dates: start: 20030101
  2. CYMBALTA [Concomitant]
  3. LYRICA [Concomitant]
  4. TOPROL-XL [Concomitant]
  5. SINGULAIR [Concomitant]
  6. ALLEGRA [Concomitant]
  7. ADVAIR (SERETIDE) [Concomitant]
  8. NEXIUM [Concomitant]
  9. HYDROCHLOROTHIAZIDE [Concomitant]
  10. CELEBREX [Concomitant]
  11. TYLENOL ARTHRITIS (PARACETAMOL) [Concomitant]
  12. CENTRUM (CENTRUM) [Concomitant]
  13. ZOCOR [Concomitant]
  14. FISH OIL (FISH OIL) [Concomitant]
  15. REQUIP [Concomitant]

REACTIONS (1)
  - TYPE 2 DIABETES MELLITUS [None]
